FAERS Safety Report 9260320 (Version 1)
Quarter: 2013Q2

REPORT INFORMATION
  Report Type: Report from Study
  Country: NL (occurrence: NL)
  Receive Date: 20130429
  Receipt Date: 20130429
  Transmission Date: 20140414
  Serious: Yes (Hospitalization)
  Sender: FDA-Public Use
  Company Number: PHHY2013NL040361

PATIENT
  Age: 33 Year
  Sex: Male
  Weight: 105 kg

DRUGS (1)
  1. SANDOSTATIN LAR [Suspect]
     Indication: ACROMEGALY
     Dosage: 30 MG, ONCE PER 4 WEEKS
     Dates: start: 20110525

REACTIONS (2)
  - Appendicitis perforated [Recovered/Resolved with Sequelae]
  - Appendiceal abscess [Recovered/Resolved with Sequelae]
